FAERS Safety Report 21847559 (Version 2)
Quarter: 2023Q1

REPORT INFORMATION
  Report Type: Spontaneous
  Country: US (occurrence: US)
  Receive Date: 20230111
  Receipt Date: 20230208
  Transmission Date: 20230418
  Serious: Yes (Hospitalization, Other)
  Sender: FDA-Public Use
  Company Number: US-MLMSERVICE-20221226-4002607-1

PATIENT
  Age: 68 Year
  Sex: Female

DRUGS (2)
  1. CYCLOPHOSPHAMIDE [Suspect]
     Active Substance: CYCLOPHOSPHAMIDE
     Indication: Invasive ductal breast carcinoma
     Dosage: 4720 MILLIGRAM/SQ. METER
     Route: 065
  2. DOXORUBICIN [Suspect]
     Active Substance: DOXORUBICIN
     Indication: Invasive ductal breast carcinoma
     Dosage: 472 MILLIGRAM/SQ. METER
     Route: 065
     Dates: start: 20211001, end: 2021

REACTIONS (4)
  - Left ventricular hypertrophy [Unknown]
  - Syncope [Recovered/Resolved]
  - Device malfunction [Recovered/Resolved]
  - Device pacing issue [Recovered/Resolved]
